FAERS Safety Report 18902715 (Version 1)
Quarter: 2021Q1

REPORT INFORMATION
  Report Type: Spontaneous
  Country: US (occurrence: US)
  Receive Date: 20210216
  Receipt Date: 20210216
  Transmission Date: 20210420
  Serious: No
  Sender: FDA-Public Use
  Company Number: None

PATIENT
  Age: 86 Year
  Sex: Male
  Weight: 90.7 kg

DRUGS (19)
  1. ALBUTEROL HFA 2 PUFFS INH Q4H PRN WHEEZING [Concomitant]
     Dates: start: 20201215, end: 20201221
  2. ASPIRIN EC 81MG DAILY [Concomitant]
     Dates: start: 20201215, end: 20201221
  3. DEXAMETHASONE 6MG IV DAILY [Concomitant]
     Dates: start: 20201216, end: 20201221
  4. LORAZEPAM 1MG IV Q4H PRN ANXIETY [Concomitant]
     Dates: start: 20201219, end: 20201221
  5. REMDESIVIR. [Suspect]
     Active Substance: REMDESIVIR
     Indication: COVID-19 PNEUMONIA
     Dosage: ?          OTHER FREQUENCY:200MG X1, 100MG/D;?
     Route: 042
     Dates: start: 20201216, end: 20201219
  6. APIXABAN 2.5MG BID [Concomitant]
     Dates: start: 20201215, end: 20201215
  7. TAMSULOSIN 0.8MG PO QAM [Concomitant]
     Dates: start: 20201215, end: 20201221
  8. VITAMIN C 1G DAILY + D3 1000 UNITS DAILY [Concomitant]
     Dates: start: 20201216, end: 20201221
  9. TEMAZEPAM 30MG QHS [Concomitant]
     Dates: start: 20201215, end: 20201221
  10. CARVEDILOL 3.125MG PO BID [Concomitant]
     Active Substance: CARVEDILOL
     Dates: start: 20201215, end: 20201221
  11. HALOPERIDOL 5MG IM Q6H PRN AGITATION [Concomitant]
     Dates: start: 20201215, end: 20201221
  12. ACETAMINOPHEN 650MG PO Q6H PRN [Concomitant]
     Dates: start: 20201215, end: 20201221
  13. ENOXAPARIN 30MG THEN 40MG QDAILY [Concomitant]
     Dates: start: 20201215, end: 20201221
  14. OLANZAPINE 1.25MG THEN 2.5MG PO BID PRN AGITATION [Concomitant]
     Dates: start: 20201215, end: 20201221
  15. PIP/TAZO 3.375G IV Q8H [Concomitant]
     Dates: start: 20201218, end: 20201221
  16. BENZONATATE 100MG Q8H [Concomitant]
     Dates: start: 20201215, end: 20201221
  17. BISACODYL 5MG DAILY PRN CONSTIPATION [Concomitant]
     Dates: start: 20201215, end: 20201221
  18. GABAPENTIN 100MG QHS [Concomitant]
     Dates: start: 20201215, end: 20201221
  19. ZINC SULATE 220MG PO DAILY [Concomitant]
     Dates: start: 20201216, end: 20201221

REACTIONS (15)
  - Pyrexia [None]
  - Fall [None]
  - Blood pressure increased [None]
  - Confusional state [None]
  - Hypoxia [None]
  - Dyspnoea [None]
  - Agitation [None]
  - Somnolence [None]
  - Blood creatinine increased [None]
  - Cough [None]
  - Hypersomnia [None]
  - Incoherent [None]
  - Atelectasis [None]
  - Wheezing [None]
  - Decreased appetite [None]

NARRATIVE: CASE EVENT DATE: 20201219
